FAERS Safety Report 6344416-5 (Version None)
Quarter: 2009Q3

REPORT INFORMATION
  Report Type: 
  Country: None (occurrence: None)
  Receive Date: 20090908
  Receipt Date: 20090831
  Transmission Date: 20100115
  Serious: Yes (Hospitalization)
  Sender: FDA-Public Use
  Company Number: PHHO2009KR10207

PATIENT
  Sex: Male
  Weight: 63 kg

DRUGS (6)
  1. RAD 666 RAD+TAB [Suspect]
     Indication: METASTATIC RENAL CELL CARCINOMA
     Dosage: 10 MG DAILY
     Route: 048
     Dates: start: 20090402, end: 20090814
  2. AMLODIPINE [Concomitant]
     Indication: HYPERTENSION
     Dosage: UNK
     Dates: start: 20070901, end: 20090819
  3. PRITOR [Concomitant]
     Indication: HYPERTENSION
     Dosage: UNK
     Dates: start: 20041001, end: 20090815
  4. BASEN [Concomitant]
     Indication: DIABETES MELLITUS
     Dosage: UNK
     Dates: start: 20070101, end: 20090815
  5. METFORMIN HCL [Concomitant]
     Indication: DIABETES MELLITUS
     Dosage: UNK
     Dates: start: 20070101, end: 20090815
  6. GLYBURIDE [Concomitant]
     Indication: DIABETES MELLITUS
     Dosage: UNK
     Dates: start: 20080101, end: 20090815

REACTIONS (9)
  - ANAEMIA [None]
  - BLOOD CREATININE INCREASED [None]
  - BLOOD UREA INCREASED [None]
  - CHILLS [None]
  - DEHYDRATION [None]
  - GASTRITIS [None]
  - PSEUDOMONAS INFECTION [None]
  - PYREXIA [None]
  - RENAL FAILURE ACUTE [None]
